FAERS Safety Report 20501203 (Version 1)
Quarter: 2022Q1

REPORT INFORMATION
  Report Type: Spontaneous
  Country: US (occurrence: US)
  Receive Date: 20220222
  Receipt Date: 20220222
  Transmission Date: 20220424
  Serious: No
  Sender: FDA-Public Use
  Company Number: US-SA-SAC20220217000085

PATIENT
  Sex: Female

DRUGS (3)
  1. DUPIXENT [Suspect]
     Active Substance: DUPILUMAB
     Indication: Idiopathic urticaria
     Dosage: 300 MG EVERY OTHER WEEK
     Route: 058
  2. DUPIXENT [Suspect]
     Active Substance: DUPILUMAB
     Indication: Asthma
  3. HYDROCORTISONE [Suspect]
     Active Substance: HYDROCORTISONE

REACTIONS (4)
  - Injection site reaction [Recovering/Resolving]
  - Injection site bruising [Unknown]
  - Product use in unapproved indication [Unknown]
  - Product use issue [Unknown]
